FAERS Safety Report 12680122 (Version 1)
Quarter: 2016Q3

REPORT INFORMATION
  Report Type: Spontaneous
  Country: US (occurrence: None)
  Receive Date: 20160823
  Receipt Date: 20160823
  Transmission Date: 20161109
  Serious: Yes (Hospitalization)
  Sender: FDA-Public Use
  Company Number: None

PATIENT
  Age: 84 Year
  Sex: Male
  Weight: 69 kg

DRUGS (2)
  1. CLOPIDOGREL [Suspect]
     Active Substance: CLOPIDOGREL BISULFATE
     Indication: CORONARY ARTERIAL STENT INSERTION
     Route: 048
     Dates: start: 20160409, end: 20160603
  2. ASPIRIN. [Suspect]
     Active Substance: ASPIRIN
     Indication: CARDIAC FAILURE CONGESTIVE
     Route: 048
     Dates: start: 20100803, end: 20160603

REACTIONS (6)
  - Haematuria [None]
  - Haemoglobin decreased [None]
  - Haematocrit decreased [None]
  - Bladder mass [None]
  - Bladder neoplasm [None]
  - Pollakiuria [None]

NARRATIVE: CASE EVENT DATE: 20160603
